FAERS Safety Report 26133275 (Version 3)
Quarter: 2025Q4

REPORT INFORMATION
  Report Type: Spontaneous
  Country: US (occurrence: US)
  Receive Date: 20251209
  Receipt Date: 20251214
  Transmission Date: 20260118
  Serious: No
  Sender: ABBVIE
  Company Number: US-ABBVIE-6577723

PATIENT
  Age: 90 Year
  Sex: Female

DRUGS (1)
  1. OXYTROL FOR WOMEN [Suspect]
     Active Substance: OXYBUTYNIN
     Indication: Hypertonic bladder
     Dosage: START DATE TEXT: UNKNOWN
     Route: 062

REACTIONS (4)
  - Rash macular [Recovering/Resolving]
  - Rash [Unknown]
  - Pruritus [Unknown]
  - Product dispensing error [Unknown]
